FAERS Safety Report 6221291-0 (Version None)
Quarter: 2009Q2

REPORT INFORMATION
  Report Type: 
  Country: None (occurrence: None)
  Receive Date: 20090610
  Receipt Date: 20090605
  Transmission Date: 20091009
  Serious: Yes (Life-Threatening, Hospitalization)
  Sender: FDA-Public Use
  Company Number: JP-BRISTOL-MYERS SQUIBB COMPANY-14618730

PATIENT
  Age: 71 Year
  Sex: Male
  Weight: 65 kg

DRUGS (8)
  1. ERBITUX [Suspect]
     Indication: COLON CANCER
     Dosage: (680MG) 08JAN09-08JAN09; (425MG) 15JAN09-12MAR09 (56 DAYS)
     Route: 042
     Dates: start: 20090108
  2. CAMPTOSAR [Suspect]
     Indication: COLON CANCER
     Dosage: (260MG) 08JAN09-05FEB09; (200MG) 26FEB09-12MAR09;
     Route: 042
     Dates: start: 20090108
  3. CHLOR-TRIMETON [Concomitant]
     Indication: PREMEDICATION
     Route: 042
     Dates: start: 20090108, end: 20090312
  4. DECADRON [Concomitant]
     Indication: PREMEDICATION
     Route: 042
     Dates: start: 20090108, end: 20090312
  5. GRANISETRON HCL [Concomitant]
     Indication: ANTIEMETIC SUPPORTIVE CARE
     Route: 042
     Dates: start: 20090108
  6. LOXONIN [Concomitant]
     Indication: PAIN
     Dosage: LOXONIN TABLET; 2 DOSAGE FORM= 2 TABS
     Route: 048
     Dates: start: 20090108
  7. CRAVIT [Concomitant]
     Indication: INFECTION PROPHYLAXIS
     Dosage: 4 DOSAGE FORM = 4 TABS; CRAVIT TABLET
     Route: 048
     Dates: start: 20090108
  8. CELTECT [Concomitant]
     Indication: SKIN DISORDER
     Dosage: CELTECT TABLET; 2 DOSAGE FORM = 2 TABLET
     Route: 048
     Dates: start: 20090115

REACTIONS (3)
  - ANAEMIA [None]
  - GASTROINTESTINAL PERFORATION [None]
  - WHITE BLOOD CELL COUNT DECREASED [None]
